FAERS Safety Report 11014832 (Version 2)
Quarter: 2015Q2

REPORT INFORMATION
  Report Type: Spontaneous
  Country: US (occurrence: US)
  Receive Date: 20150412
  Receipt Date: 20150525
  Transmission Date: 20150821
  Serious: No
  Sender: FDA-Public Use
  Company Number: US-JNJFOC-20131115280

PATIENT

DRUGS (1)
  1. TRAMADOL [Suspect]
     Active Substance: TRAMADOL
     Indication: PAIN
     Route: 065

REACTIONS (12)
  - Insomnia [Unknown]
  - Headache [Unknown]
  - Disturbance in attention [Unknown]
  - Fatigue [Unknown]
  - Dizziness [Unknown]
  - Pruritus [Unknown]
  - Vomiting [Unknown]
  - Somnolence [Unknown]
  - Adverse event [Unknown]
  - Constipation [Unknown]
  - Nausea [Unknown]
  - Mental status changes [Unknown]
